FAERS Safety Report 5280759-4 (Version None)
Quarter: 2007Q1

REPORT INFORMATION
  Report Type: 
  Country: None (occurrence: None)
  Receive Date: 20070329
  Receipt Date: 20070319
  Transmission Date: 20070707
  Serious: Yes (Other)
  Sender: FDA-Public Use
  Company Number: FR-PFIZER INC-2007014500

PATIENT
  Sex: Female

DRUGS (1)
  1. TAHOR [Suspect]
     Dates: start: 20061030, end: 20061113

REACTIONS (18)
  - ANXIETY [None]
  - ASTHENIA [None]
  - CHEST PAIN [None]
  - CONSTIPATION [None]
  - DEPRESSION [None]
  - DIARRHOEA [None]
  - FATIGUE [None]
  - INSOMNIA [None]
  - MUSCLE ATROPHY [None]
  - MUSCLE SPASMS [None]
  - OCULAR DISCOMFORT [None]
  - PAIN [None]
  - PAIN IN EXTREMITY [None]
  - RESPIRATORY DISTRESS [None]
  - TACHYCARDIA [None]
  - TENDONITIS [None]
  - URTICARIA [None]
  - WEIGHT DECREASED [None]
